FAERS Safety Report 7914181-6 (Version None)
Quarter: 2011Q4

REPORT INFORMATION
  Report Type: 
  Country: None (occurrence: None)
  Receive Date: 20111115
  Receipt Date: 20111115
  Transmission Date: 20120403
  Serious: Yes (Disabling, Other)
  Sender: FDA-Public Use
  Company Number: None

PATIENT
  Age: 52 Year
  Sex: Female
  Weight: 73.028 kg

DRUGS (1)
  1. VERAPAMIL [Suspect]
     Indication: HYPERTENSION
     Dosage: 240MG SA TAB
     Route: 048

REACTIONS (12)
  - MYALGIA [None]
  - RENAL IMPAIRMENT [None]
  - PULMONARY OEDEMA [None]
  - LIVER INJURY [None]
  - CHEST DISCOMFORT [None]
  - FATIGUE [None]
  - BLOOD TRIGLYCERIDES INCREASED [None]
  - WEIGHT INCREASED [None]
  - LIPIDS INCREASED [None]
  - HEPATOMEGALY [None]
  - CHEST PAIN [None]
  - VISION BLURRED [None]
